FAERS Safety Report 9531327 (Version 3)
Quarter: 2013Q4

REPORT INFORMATION
  Report Type: Spontaneous
  Country: NZ (occurrence: None)
  Receive Date: 20130916
  Receipt Date: 20131011
  Transmission Date: 20140711
  Serious: Yes (Hospitalization)
  Sender: FDA-Public Use
  Company Number: 2013-1486

PATIENT
  Age: 51 Year
  Sex: Male

DRUGS (11)
  1. CARFILZOMIB [Suspect]
     Indication: PLASMA CELL MYELOMA
     Dosage: 44 MG, DAYS 1, 2)
     Route: 042
     Dates: start: 20121122, end: 20121123
  2. DEXAMETHASONE [Suspect]
     Indication: PLASMA CELL MYELOMA
     Dosage: 20 MG, DAYS 1, 2, 8, 9, 15, 16, 22, 23, EVERY 28 DAYS
     Route: 048
     Dates: start: 20121122, end: 20130208
  3. PAROXETINE (PAROXETINE) (PAROXETINE) [Concomitant]
  4. SYMBICORT (FORMOTEROL FUMARATE, BUDESONIDE) (FORMOTEROL FUMARATE, BUDESONIDE) [Concomitant]
  5. VENTOLIN (SALBUTAMOL) (SALBUTAMOL) [Concomitant]
  6. ACICLOVIR (ACICLOVIR) (ACICLOVIR) [Concomitant]
  7. ALLOPURINOL (ALLOPURINOL) (ALLOPURINOL) [Concomitant]
  8. OMEPRAZOLE (OMEPRAZOLE) (OMEPRAZOLE) [Concomitant]
  9. COTRIMOXAZOLE (SULFAMETHOXAZOLE, TRIMETHOPRIM) (SULFAMETHOXAZOLE, TRIMETHOPRIM) [Concomitant]
  10. FLIXONASE (FLUTICASONE PROPIONATE) (FLUTICASONE PROPIONATE) [Concomitant]
  11. SUDOMYL (PSDEUDOPHEDRINE HYDROCHLORIDE BP 60 MG) (PSEUDOEPHEDRINE HYDROCHLORIDE) (PSEUDOEPHEDRINE HYDROCHLORIDE) [Concomitant]

REACTIONS (6)
  - Asthma [None]
  - Blood pressure systolic increased [None]
  - Respiratory syncytial virus test positive [None]
  - Influenza like illness [None]
  - Productive cough [None]
  - Asthma [None]
